FAERS Safety Report 7716585-3 (Version None)
Quarter: 2011Q3

REPORT INFORMATION
  Report Type: 
  Country: None (occurrence: None)
  Receive Date: 20110829
  Receipt Date: 20110809
  Transmission Date: 20111222
  Serious: Yes (Other)
  Sender: FDA-Public Use
  Company Number: US-SANOFI-AVENTIS-2011SA051496

PATIENT
  Age: 58 Year
  Sex: Female

DRUGS (4)
  1. SOLOSTAR [Suspect]
     Indication: TYPE 2 DIABETES MELLITUS
  2. SOLOSTAR [Suspect]
  3. LANTUS [Suspect]
     Indication: TYPE 2 DIABETES MELLITUS
     Dosage: START DATE: A NUMBER OF YEARS AGO DOSE:32 UNIT(S)
     Route: 058
  4. APIDRA [Suspect]
     Indication: TYPE 2 DIABETES MELLITUS
     Dosage: START DATE: A NUMBER OF YEARS AGODOSE: 18-20 UNITS THREE TIMES DAILY
     Route: 058

REACTIONS (2)
  - DEVICE MALFUNCTION [None]
  - BLOOD GLUCOSE INCREASED [None]
